FAERS Safety Report 9295837 (Version 1)
Quarter: 2013Q1

REPORT INFORMATION
  Report Type: Spontaneous
  Country: US (occurrence: None)
  Receive Date: 20121220
  Receipt Date: 20121220
  Transmission Date: 20140127
  Serious: Yes (Hospitalization)
  Sender: FDA-Public Use
  Company Number: 1204USA02314

PATIENT
  Age: 56 Year
  Sex: Male

DRUGS (11)
  1. JANUMET [Suspect]
     Dosage: 1000/50, ORAL
     Route: 048
     Dates: start: 20120118
  2. ZETIA (EZETIMIBE) [Suspect]
     Route: 048
  3. COREG (CARVEDILOL) [Concomitant]
  4. DIOVAN (VALSARTAN) [Concomitant]
  5. PLAVIX (CLOPIDOGREL BISULFATE) [Concomitant]
  6. ASPIRIN (ASPIRIN) [Concomitant]
  7. CRESTOR (ROSUVASTATIN CALCIUM) [Concomitant]
  8. CHANTIX (VARENICLINE TARTRATE) [Concomitant]
  9. METAMUCIL (PSYLLIUM HUSK) [Concomitant]
  10. TYLENOL (ACETAMINOPHEN) [Concomitant]
  11. MK-9278 (VITAMINS) TABLET [Concomitant]

REACTIONS (4)
  - Pancreatitis [None]
  - Blood triglycerides increased [None]
  - Blood glucose increased [None]
  - Non-high-density lipoprotein cholesterol increased [None]
